FAERS Safety Report 5143663-8 (Version None)
Quarter: 2006Q4

REPORT INFORMATION
  Report Type: 
  Country: None (occurrence: None)
  Receive Date: 20061103
  Receipt Date: 20060829
  Transmission Date: 20070319
  Serious: Yes (Hospitalization, Disabling)
  Sender: FDA-Public Use
  Company Number: US-BOEHRINGER INGELHEIM PHARMACEUTICALS, INC.-2006-BP-10113BP

PATIENT
  Age: 44 Year
  Sex: Male
  Weight: 91.63 kg

DRUGS (3)
  1. MICARDIS [Suspect]
     Indication: HYPERTENSION
  2. MICARDIS HCT [Suspect]
     Route: 048
     Dates: start: 20060607, end: 20060628
  3. MICARDIS HCT [Suspect]
     Route: 048
     Dates: start: 20060629, end: 20060801

REACTIONS (5)
  - BLOOD PRESSURE INCREASED [None]
  - CENTRAL NERVOUS SYSTEM NEOPLASM [None]
  - CHRONIC SINUSITIS [None]
  - DIZZINESS [None]
  - DYSPNOEA [None]
